FAERS Safety Report 19083682 (Version 1)
Quarter: 2021Q2

REPORT INFORMATION
  Report Type: Spontaneous
  Country: PR (occurrence: PR)
  Receive Date: 20210401
  Receipt Date: 20210401
  Transmission Date: 20210717
  Serious: Yes (Hospitalization)
  Sender: FDA-Public Use
  Company Number: PR-BAYER-2021-112525

PATIENT
  Age: 52 Year
  Sex: Female

DRUGS (1)
  1. STIVARGA [Suspect]
     Active Substance: REGORAFENIB
     Indication: COLON CANCER
     Dosage: 120 MG DAILY 21 DAYS AND 7 DAYS OFF
     Dates: start: 20210323

REACTIONS (2)
  - Hospitalisation [None]
  - Off label use [None]

NARRATIVE: CASE EVENT DATE: 20210323
